FAERS Safety Report 8916738 (Version 1)
Quarter: 2012Q4

REPORT INFORMATION
  Report Type: Report from Study
  Country: US (occurrence: US)
  Receive Date: 20121120
  Receipt Date: 20121120
  Transmission Date: 20130627
  Serious: Yes (Death, Hospitalization, Other)
  Sender: FDA-Public Use
  Company Number: US-ABBOTT-12P-163-1009729-00

PATIENT
  Age: 72 None
  Sex: Female

DRUGS (5)
  1. HUMIRA [Suspect]
     Indication: RHEUMATOID ARTHRITIS
  2. MORPHINE [Suspect]
     Indication: PAIN
  3. UNKNOWN MEDICATION [Concomitant]
     Indication: HYPERTENSION
  4. COUMADIN [Concomitant]
     Indication: PRODUCT USED FOR UNKNOWN INDICATION
  5. POTASSIUM [Concomitant]
     Indication: PRODUCT USED FOR UNKNOWN INDICATION

REACTIONS (15)
  - Skin ulcer [Not Recovered/Not Resolved]
  - Sepsis [Fatal]
  - Diarrhoea [Recovered/Resolved]
  - Pain in extremity [Recovered/Resolved]
  - Cellulitis [Recovered/Resolved]
  - Unresponsive to stimuli [Recovered/Resolved]
  - Cerebrovascular accident [Not Recovered/Not Resolved]
  - Asthenia [Not Recovered/Not Resolved]
  - Contusion [Not Recovered/Not Resolved]
  - Pain [Fatal]
  - Pallor [Fatal]
  - Peripheral coldness [Fatal]
  - Unresponsive to stimuli [Fatal]
  - Dehydration [Fatal]
  - Blood pressure decreased [Fatal]
